FAERS Safety Report 12467131 (Version 1)
Quarter: 2016Q2

REPORT INFORMATION
  Report Type: Spontaneous
  Country: US (occurrence: None)
  Receive Date: 20160614
  Receipt Date: 20160614
  Transmission Date: 20160815
  Serious: No
  Sender: FDA-Public Use
  Company Number: None

PATIENT

DRUGS (2)
  1. ONDANSETRON MYLAN PHARMACEUTICALS, INC. [Suspect]
     Active Substance: ONDANSETRON
     Dosage: INJECTABLE INTRAVENOUS OR IM SINGLE DOSE VIAL 2 ML
     Route: 030
  2. NALOXONE HCL NALOXONE HCL MYLAN PHARMACEUTICALS, INC. [Suspect]
     Active Substance: NALOXONE HYDROCHLORIDE
     Dosage: INJECTABLE INJECTION 0.4MG/ML SINGLE DOSE VIAL 1 ML

REACTIONS (1)
  - Product label confusion [None]
